FAERS Safety Report 5103280-2 (Version None)
Quarter: 2006Q3

REPORT INFORMATION
  Report Type: 
  Country: None (occurrence: None)
  Receive Date: 20060913
  Receipt Date: 20060608
  Transmission Date: 20061208
  Serious: Yes (Hospitalization, Other)
  Sender: FDA-Public Use
  Company Number: US-BAYER-200612427BCC

PATIENT
  Age: 47 Year
  Sex: Female
  Weight: 112 kg

DRUGS (10)
  1. ALEVE (CAPLET) [Suspect]
     Indication: ARTHRALGIA
     Dosage: TOTAL DAILY DOSE: 2200 MG  UNIT DOSE: 220 MG
     Route: 048
     Dates: start: 20060515, end: 20060515
  2. PEGASYS [Suspect]
     Indication: HEPATITIS C
     Route: 058
     Dates: start: 20051205, end: 20060524
  3. COPEGUS [Suspect]
     Indication: HEPATITIS C
     Dosage: TOTAL DAILY DOSE: 1200 MG
     Route: 048
     Dates: start: 20051205, end: 20060524
  4. DIOVAN HCT [Concomitant]
     Indication: HYPERTENSION
     Route: 048
     Dates: start: 20050401
  5. DYNACIRC [Concomitant]
     Indication: HYPERTENSION
     Route: 048
     Dates: start: 20050401
  6. NIFEDIPINE [Concomitant]
     Indication: HYPERTENSION
     Route: 048
     Dates: start: 20051210
  7. ULTRACET [Concomitant]
     Indication: ARTHRALGIA
     Route: 048
     Dates: start: 20051210
  8. LORTAB [Concomitant]
     Indication: ARTHRALGIA
     Route: 048
     Dates: start: 20051210
  9. BENADRYL [Concomitant]
     Indication: INSOMNIA
     Route: 048
     Dates: start: 20060130
  10. NAPROXEN [Concomitant]
     Dates: start: 20050627

REACTIONS (10)
  - ANAEMIA [None]
  - DIABETES MELLITUS [None]
  - HAEMOLYTIC URAEMIC SYNDROME [None]
  - INCORRECT DRUG ADMINISTRATION DURATION [None]
  - OVERDOSE [None]
  - PROTHROMBIN TIME PROLONGED [None]
  - THROMBOCYTOPENIA [None]
  - THROMBOCYTOPENIC PURPURA [None]
  - THROMBOTIC THROMBOCYTOPENIC PURPURA [None]
  - TREATMENT NONCOMPLIANCE [None]
